FAERS Safety Report 9998105 (Version 1)
Quarter: 2014Q1

REPORT INFORMATION
  Report Type: Spontaneous
  Country: US (occurrence: None)
  Receive Date: 20140221
  Receipt Date: 20140221
  Transmission Date: 20141002
  Serious: No
  Sender: FDA-Public Use
  Company Number: 1000052141

PATIENT
  Age: 79 Year
  Sex: Male

DRUGS (3)
  1. TUDORZA PRESSAIR (ACLIDINIUM BROMIDE) (400 MICROGRAM, POWDER) [Suspect]
     Indication: DYSPNOEA
     Dosage: 800 MCG (400 MCG, 2 IN 1 D)
     Route: 055
     Dates: start: 201310, end: 201311
  2. COMBIVENT (IPRATROPIUM BROMIDE, ALBUTEROL SULFATE) (IPRATROPIUM BROMIDE, ALBUTEROL SULFATE) [Concomitant]
  3. OXYGEN (OXYGEN) (OXYGEN) [Concomitant]

REACTIONS (3)
  - Cough [None]
  - Dizziness [None]
  - Off label use [None]
